FAERS Safety Report 7902046-5 (Version None)
Quarter: 2011Q4

REPORT INFORMATION
  Report Type: 
  Country: None (occurrence: None)
  Receive Date: 20111108
  Receipt Date: 20110218
  Transmission Date: 20120403
  Serious: Yes (Hospitalization)
  Sender: FDA-Public Use
  Company Number: JP-GLAXOSMITHKLINE-B0701311A

PATIENT
  Sex: Female

DRUGS (6)
  1. ZOLPIDEM [Concomitant]
     Indication: BIPOLAR DISORDER
     Dosage: 10MG PER DAY
     Route: 048
     Dates: start: 20100801
  2. PURSENNID [Concomitant]
     Indication: CONSTIPATION
     Dosage: 24MG PER DAY
     Route: 048
     Dates: start: 20100801
  3. PRAMIPEXOLE DIHYDROCHLORIDE [Concomitant]
     Indication: BIPOLAR DISORDER
     Dosage: .5MG PER DAY
     Route: 048
     Dates: start: 20110118
  4. LITHIUM CARBONATE [Concomitant]
     Indication: BIPOLAR DISORDER
     Dosage: 400MG PER DAY
     Route: 048
     Dates: start: 20100801
  5. LAMICTAL [Suspect]
     Indication: BIPOLAR I DISORDER
     Dosage: 25MG PER DAY
     Route: 048
     Dates: start: 20110118, end: 20110201
  6. CLONAZEPAM [Concomitant]
     Indication: BIPOLAR DISORDER
     Dosage: .5MG PER DAY
     Route: 048
     Dates: start: 20100901

REACTIONS (12)
  - EYE PAIN [None]
  - ERYTHEMA [None]
  - LIP SWELLING [None]
  - STEVENS-JOHNSON SYNDROME [None]
  - PARAESTHESIA ORAL [None]
  - CONJUNCTIVAL HYPERAEMIA [None]
  - PYREXIA [None]
  - URTICARIA [None]
  - TONGUE DISORDER [None]
  - RASH PRURITIC [None]
  - DRY EYE [None]
  - DRUG ERUPTION [None]
